FAERS Safety Report 8615279-X (Version None)
Quarter: 2012Q3

REPORT INFORMATION
  Report Type: 
  Country: None (occurrence: None)
  Receive Date: 20120823
  Receipt Date: 20120821
  Transmission Date: 20120928
  Serious: Yes (Other)
  Sender: FDA-Public Use
  Company Number: US-PFIZER INC-2012154064

PATIENT
  Age: 74 Year
  Sex: Female
  Weight: 72.562 kg

DRUGS (9)
  1. NORVASC [Concomitant]
     Indication: HYPERTENSION
     Dosage: UNK, 1X/DAY
  2. SYNTHROID [Concomitant]
     Dosage: UNK, 1X/DAY
  3. GABAPENTIN [Suspect]
     Indication: DEPRESSION
     Dosage: 300 MG, UNK
  4. GABAPENTIN [Suspect]
     Indication: SLEEP DISORDER
  5. KLONOPIN [Concomitant]
     Dosage: 0.25 MG, 1X/DAY
  6. PAXIL CR [Concomitant]
     Dosage: 37.5 MG, 1X/DAY
  7. LITHIUM [Concomitant]
     Dosage: UNK, 1X/DAY
  8. NEURONTIN [Suspect]
     Indication: SLEEP DISORDER
     Dosage: UNK, 1X/DAY
     Route: 048
     Dates: start: 20120607, end: 20120601
  9. NEURONTIN [Suspect]
     Dosage: UNK, 1X/DAY
     Route: 048
     Dates: start: 20120601

REACTIONS (4)
  - SOMNOLENCE [None]
  - DEPRESSION [None]
  - ABDOMINAL TENDERNESS [None]
  - NERVOUSNESS [None]
